FAERS Safety Report 7508526-9 (Version None)
Quarter: 2011Q2

REPORT INFORMATION
  Report Type: 
  Country: None (occurrence: None)
  Receive Date: 20110527
  Receipt Date: 20110524
  Transmission Date: 20111010
  Serious: Yes (Life-Threatening, Other)
  Sender: FDA-Public Use
  Company Number: GB-ELI_LILLY_AND_COMPANY-GB201105006584

PATIENT
  Age: 64 Year
  Sex: Male
  Weight: 113.3 kg

DRUGS (8)
  1. GLICLAZIDE [Concomitant]
  2. ASPIRIN [Concomitant]
  3. RAMIPRIL [Concomitant]
  4. SILDENAFIL CITRATE [Concomitant]
  5. BYETTA [Suspect]
     Dosage: UNK
     Dates: start: 20090727, end: 20110314
  6. METFORMIN HCL [Concomitant]
  7. MIRTAZAPINE [Concomitant]
  8. SIMVASTATIN [Concomitant]

REACTIONS (4)
  - GLYCOSYLATED HAEMOGLOBIN INCREASED [None]
  - LUNG ADENOCARCINOMA METASTATIC [None]
  - LIVER FUNCTION TEST ABNORMAL [None]
  - TERMINAL STATE [None]
